FAERS Safety Report 11224736 (Version 1)
Quarter: 2015Q2

REPORT INFORMATION
  Report Type: Spontaneous
  Country: UG (occurrence: None)
  Receive Date: 20150625
  Receipt Date: 20150625
  Transmission Date: 20150821
  Serious: Yes (Life-Threatening, Hospitalization)
  Sender: FDA-Public Use
  Company Number: B1031199A

PATIENT
  Age: 32 Year
  Sex: Male

DRUGS (5)
  1. EFAVIRENZ (EFAVIRENZ) UNKNOWN [Suspect]
     Active Substance: EFAVIRENZ
     Indication: HIV INFECTION
     Dates: start: 20140318
  2. ISONIAZID. [Suspect]
     Active Substance: ISONIAZID
     Indication: HIV INFECTION
     Dates: start: 20140318, end: 20150218
  3. PYRIDOXINE (PYRIDOXINE) UNKNOWN [Suspect]
     Active Substance: PYRIDOXINE
     Indication: HIV INFECTION
     Dates: start: 20140318, end: 20150218
  4. LAMIVUDINE AND ZIDOVUDINE [Suspect]
     Active Substance: LAMIVUDINE\ZIDOVUDINE
     Indication: HIV INFECTION
     Dates: start: 20140318, end: 20140901
  5. COTRIMOXAZOLE [Suspect]
     Active Substance: SULFAMETHOXAZOLE\TRIMETHOPRIM
     Indication: HIV INFECTION
     Dates: start: 20140318

REACTIONS (1)
  - Anaemia [None]

NARRATIVE: CASE EVENT DATE: 20140610
